FAERS Safety Report 21749981 (Version 6)
Quarter: 2023Q2

REPORT INFORMATION
  Report Type: Report from Study
  Country: CA (occurrence: CA)
  Receive Date: 20221219
  Receipt Date: 20230626
  Transmission Date: 20230721
  Serious: Yes (Hospitalization, Other)
  Sender: FDA-Public Use
  Company Number: CA-TAKEDA-2022TUS096413

PATIENT
  Sex: Female

DRUGS (4)
  1. VEDOLIZUMAB [Suspect]
     Active Substance: VEDOLIZUMAB
     Indication: Colitis ulcerative
     Dosage: 300 MILLIGRAM
     Route: 042
     Dates: start: 20210317
  2. VEDOLIZUMAB [Suspect]
     Active Substance: VEDOLIZUMAB
     Dosage: 300 MILLIGRAM
     Route: 042
     Dates: start: 20230616
  3. PREDNISONE [Concomitant]
     Active Substance: PREDNISONE
     Dosage: UNK
     Dates: start: 20210305
  4. MESALAMINE [Concomitant]
     Active Substance: MESALAMINE
     Dosage: UNK UNK, QD
     Dates: start: 2012

REACTIONS (9)
  - Colitis ulcerative [Unknown]
  - Rectal haemorrhage [Unknown]
  - Transitional cell carcinoma [Not Recovered/Not Resolved]
  - Thyroiditis subacute [Unknown]
  - Thyroid mass [Unknown]
  - Weight decreased [Unknown]
  - Abdominal discomfort [Unknown]
  - Alopecia [Unknown]
  - Blood iron decreased [Unknown]
